FAERS Safety Report 5508672-5 (Version None)
Quarter: 2007Q4

REPORT INFORMATION
  Report Type: 
  Country: None (occurrence: None)
  Receive Date: 20071031
  Receipt Date: 20070613
  Transmission Date: 20080405
  Serious: No
  Sender: FDA-Public Use
  Company Number: 2007PV033032

PATIENT
  Age: 67 Year
  Sex: Female

DRUGS (7)
  1. SYMLIN [Suspect]
     Indication: TYPE 2 DIABETES MELLITUS
     Dosage: 60 MCG;TID;SC ; 30 MCG;SC ; TID;SC ; BID;SC ; 15 MCG;QD;SC
     Route: 058
     Dates: start: 20070101, end: 20070101
  2. SYMLIN [Suspect]
     Indication: TYPE 2 DIABETES MELLITUS
     Dosage: 60 MCG;TID;SC ; 30 MCG;SC ; TID;SC ; BID;SC ; 15 MCG;QD;SC
     Route: 058
     Dates: start: 20070101, end: 20070101
  3. SYMLIN [Suspect]
     Indication: TYPE 2 DIABETES MELLITUS
     Dosage: 60 MCG;TID;SC ; 30 MCG;SC ; TID;SC ; BID;SC ; 15 MCG;QD;SC
     Route: 058
     Dates: start: 20070101, end: 20070101
  4. SYMLIN [Suspect]
     Indication: TYPE 2 DIABETES MELLITUS
     Dosage: 60 MCG;TID;SC ; 30 MCG;SC ; TID;SC ; BID;SC ; 15 MCG;QD;SC
     Route: 058
     Dates: start: 20070101, end: 20070101
  5. SYMLIN [Suspect]
     Indication: TYPE 2 DIABETES MELLITUS
     Dosage: 60 MCG;TID;SC ; 30 MCG;SC ; TID;SC ; BID;SC ; 15 MCG;QD;SC
     Route: 058
     Dates: start: 20070601
  6. LEVEMIR [Concomitant]
  7. HUMALOG [Concomitant]

REACTIONS (3)
  - BLOOD GLUCOSE FLUCTUATION [None]
  - HYPERHIDROSIS [None]
  - TREMOR [None]
